FAERS Safety Report 8097625-1 (Version None)
Quarter: 2012Q1

REPORT INFORMATION
  Report Type: 
  Country: None (occurrence: None)
  Receive Date: 20120128
  Receipt Date: 20110701
  Transmission Date: 20120608
  Serious: No
  Sender: FDA-Public Use
  Company Number: US-ABBOTT-11P-163-0836444-00

PATIENT
  Sex: Female
  Weight: 91.254 kg

DRUGS (8)
  1. CLONAZEPAM [Concomitant]
     Indication: INSOMNIA
  2. METHOTREXATE [Concomitant]
     Indication: RHEUMATOID ARTHRITIS
  3. SENSA [Concomitant]
     Indication: WEIGHT DECREASED
  4. BISOPROLOL [Concomitant]
     Indication: HYPERTENSION
  5. PILOCARPINE [Concomitant]
     Indication: APTYALISM
  6. HUMIRA [Suspect]
     Indication: SYSTEMIC LUPUS ERYTHEMATOSUS
  7. HUMIRA [Suspect]
     Indication: RHEUMATOID ARTHRITIS
     Dates: start: 20110601
  8. CLONAZEPAM [Concomitant]
     Indication: MUSCLE SPASMS

REACTIONS (2)
  - OEDEMA PERIPHERAL [None]
  - CONTUSION [None]
